FAERS Safety Report 9295515 (Version 1)
Quarter: 2013Q2

REPORT INFORMATION
  Report Type: Spontaneous
  Country: US (occurrence: US)
  Receive Date: 20130517
  Receipt Date: 20130517
  Transmission Date: 20140414
  Serious: No
  Sender: FDA-Public Use
  Company Number: US-BANPHARM-20130521

PATIENT
  Age: 78 Year
  Sex: Male
  Weight: 97.52 kg

DRUGS (3)
  1. IBUPROFEN CAPSULES 200 MG [Suspect]
     Indication: MUSCULOSKELETAL PAIN
     Dosage: 2 DF, ONCE,
     Route: 048
     Dates: start: 20121227, end: 20121227
  2. ATCAND [Concomitant]
     Dosage: 32 MG, QD,
  3. AMLODIPINE [Concomitant]
     Dosage: 5 MG, QD,

REACTIONS (1)
  - Dizziness [Recovered/Resolved]
